FAERS Safety Report 8351997-9 (Version None)
Quarter: 2012Q2

REPORT INFORMATION
  Report Type: 
  Country: None (occurrence: None)
  Receive Date: 20120511
  Receipt Date: 20120503
  Transmission Date: 20120825
  Serious: Yes (Other)
  Sender: FDA-Public Use
  Company Number: US-BAYER-2011-112134

PATIENT
  Age: 16 Year
  Sex: Female

DRUGS (8)
  1. LEVAQUIN [Concomitant]
     Route: 042
  2. YAZ [Suspect]
     Dosage: UNK
     Dates: start: 20080301, end: 20081001
  3. SYNTHROID [Concomitant]
  4. CEFZIL [Concomitant]
  5. DICYCLOMINE [Concomitant]
  6. DEPO-PROVERA [Concomitant]
  7. ZITHROMAX [Concomitant]
  8. IBUPROFEN (ADVIL) [Concomitant]

REACTIONS (5)
  - INJURY [None]
  - ANXIETY [None]
  - PAIN [None]
  - PULMONARY EMBOLISM [None]
  - EMOTIONAL DISTRESS [None]
